FAERS Safety Report 5529723-8 (Version None)
Quarter: 2007Q4

REPORT INFORMATION
  Report Type: 
  Country: None (occurrence: None)
  Receive Date: 20071129
  Receipt Date: 20061215
  Transmission Date: 20080405
  Serious: No
  Sender: FDA-Public Use
  Company Number: US-ABBOTT-06P-163-0354220-00

PATIENT
  Sex: Female
  Weight: 59.02 kg

DRUGS (1)
  1. MERIDIA [Suspect]
     Indication: WEIGHT CONTROL
     Route: 048
     Dates: start: 20061101, end: 20061115

REACTIONS (3)
  - ANOREXIA [None]
  - HEADACHE [None]
  - HEART RATE INCREASED [None]
